FAERS Safety Report 11529007 (Version 1)
Quarter: 2015Q3

REPORT INFORMATION
  Report Type: Spontaneous
  Country: DE (occurrence: DE)
  Receive Date: 20150921
  Receipt Date: 20150921
  Transmission Date: 20151125
  Serious: Yes (Death)
  Sender: FDA-Public Use
  Company Number: DE-ROCHE-1621772

PATIENT
  Age: 57 Year
  Sex: Female
  Weight: 55 kg

DRUGS (3)
  1. AVASTIN [Suspect]
     Active Substance: BEVACIZUMAB
     Indication: BREAST CANCER METASTATIC
     Route: 042
     Dates: start: 20141001, end: 20150217
  2. PACLITAXEL. [Concomitant]
     Active Substance: PACLITAXEL
     Indication: BREAST CANCER METASTATIC
     Route: 042
     Dates: start: 20141001, end: 20141022
  3. AVASTIN [Suspect]
     Active Substance: BEVACIZUMAB
     Dosage: /SEP/2009
     Route: 042
     Dates: start: 201504, end: 20150618

REACTIONS (3)
  - Oesophageal rupture [Fatal]
  - Haemorrhage [Fatal]
  - Oesophagitis [Fatal]

NARRATIVE: CASE EVENT DATE: 20150801
